FAERS Safety Report 17800034 (Version 1)
Quarter: 2020Q2

REPORT INFORMATION
  Report Type: Report from Study
  Country: None (occurrence: US)
  Receive Date: 20200518
  Receipt Date: 20200518
  Transmission Date: 20200714
  Serious: Yes (Other)
  Sender: FDA-Public Use
  Company Number: US-ABBVIE-20K-163-3341015-00

PATIENT
  Sex: Male

DRUGS (1)
  1. HUMIRA [Suspect]
     Active Substance: ADALIMUMAB
     Indication: ANKYLOSING SPONDYLITIS
     Route: 058

REACTIONS (16)
  - Weight decreased [Unknown]
  - Back pain [Unknown]
  - Spinal disorder [Unknown]
  - Back pain [Recovering/Resolving]
  - Myalgia [Unknown]
  - Muscle spasms [Recovered/Resolved]
  - Dysphagia [Unknown]
  - Deformity thorax [Unknown]
  - Ear discomfort [Recovered/Resolved]
  - Sinusitis [Recovered/Resolved]
  - Goitre [Unknown]
  - Oral disorder [Unknown]
  - Dysphagia [Unknown]
  - Hypersensitivity [Unknown]
  - Epistaxis [Recovered/Resolved]
  - Oropharyngeal pain [Recovered/Resolved]

NARRATIVE: CASE EVENT DATE: 2014
